FAERS Safety Report 4360591-6 (Version None)
Quarter: 2004Q2

REPORT INFORMATION
  Report Type: 
  Country: None (occurrence: None)
  Receive Date: 20040519
  Receipt Date: 20040507
  Transmission Date: 20050107
  Serious: Yes (Death, Hospitalization, Other)
  Sender: FDA-Public Use
  Company Number: BE-BRISTOL-MYERS SQUIBB COMPANY-12582904

PATIENT
  Age: 90 Year
  Sex: Female
  Weight: 40 kg

DRUGS (17)
  1. MAXIPIME [Suspect]
     Indication: URINARY TRACT INFECTION
     Route: 042
     Dates: start: 20040310, end: 20040315
  2. MAXIPIME [Suspect]
     Indication: SEPSIS
     Route: 042
     Dates: start: 20040310, end: 20040315
  3. ALLOPURINOL TAB [Concomitant]
  4. ISOTEN [Concomitant]
  5. TILDIEM [Concomitant]
  6. ASPEGIC 325 [Concomitant]
  7. HYDERGINE [Concomitant]
  8. PERSANTIN RETARD [Concomitant]
  9. ALDACTAZINE [Concomitant]
  10. NOOTROPIL [Concomitant]
  11. HYPERLIPEN [Concomitant]
  12. DEPONIT [Concomitant]
  13. ATROVENT [Concomitant]
  14. PULMICORT [Concomitant]
  15. FRAXIPARINE [Concomitant]
  16. LASIX [Concomitant]
  17. FOLAVIT [Concomitant]

REACTIONS (4)
  - CARDIAC FAILURE [None]
  - COMA [None]
  - EPILEPSY [None]
  - RENAL IMPAIRMENT [None]
